FAERS Safety Report 8126233-9 (Version None)
Quarter: 2012Q1

REPORT INFORMATION
  Report Type: 
  Country: None (occurrence: None)
  Receive Date: 20120209
  Receipt Date: 20120207
  Transmission Date: 20120608
  Serious: Yes (Other)
  Sender: FDA-Public Use
  Company Number: PHEH2011US010031

PATIENT
  Age: 55 Year
  Sex: Female
  Weight: 59.864 kg

DRUGS (1)
  1. RECLAST [Suspect]
     Indication: OSTEOPOROSIS
     Dosage: 5 MG/100 ML YEARLY
     Route: 042
     Dates: start: 20111112

REACTIONS (5)
  - MYALGIA [None]
  - INFLUENZA LIKE ILLNESS [None]
  - PYREXIA [None]
  - TONSILLAR INFLAMMATION [None]
  - RASH [None]
